FAERS Safety Report 6624888-9 (Version None)
Quarter: 2010Q1

REPORT INFORMATION
  Report Type: 
  Country: None (occurrence: None)
  Receive Date: 20100310
  Receipt Date: 20090915
  Transmission Date: 20100710
  Serious: No
  Sender: FDA-Public Use
  Company Number: US-BIOGENIDEC-2009BI029300

PATIENT
  Age: 46 Year
  Sex: Female

DRUGS (3)
  1. AVONEX [Suspect]
     Indication: MULTIPLE SCLEROSIS
     Route: 030
     Dates: start: 20090718
  2. TYLENOL-500 [Concomitant]
     Indication: PREMEDICATION
  3. ADVIL LIQUI-GELS [Concomitant]
     Indication: PREMEDICATION

REACTIONS (5)
  - COORDINATION ABNORMAL [None]
  - HYPOAESTHESIA [None]
  - INFLUENZA LIKE ILLNESS [None]
  - PARAESTHESIA [None]
  - TEMPERATURE INTOLERANCE [None]
